FAERS Safety Report 6000309-4 (Version None)
Quarter: 2008Q4

REPORT INFORMATION
  Report Type: 
  Country: None (occurrence: None)
  Receive Date: 20081211
  Receipt Date: 20081127
  Transmission Date: 20090506
  Serious: No
  Sender: FDA-Public Use
  Company Number: 08P-229-0490393-00

PATIENT
  Sex: 0

DRUGS (1)
  1. SYNAGIS [Suspect]
     Indication: DRUG USE FOR UNKNOWN INDICATION
     Dosage: 15 MG/KG
     Dates: start: 20081003

REACTIONS (1)
  - BRONCHIOLITIS [None]
